FAERS Safety Report 12630831 (Version 1)
Quarter: 2016Q3

REPORT INFORMATION
  Report Type: Spontaneous
  Country: US (occurrence: US)
  Receive Date: 20160808
  Receipt Date: 20160808
  Transmission Date: 20161109
  Serious: Yes (Hospitalization)
  Sender: FDA-Public Use
  Company Number: GXBR2016US002484

PATIENT
  Sex: Female
  Weight: 80.38 kg

DRUGS (3)
  1. FUROSEMIDE TABLETS USP [Suspect]
     Active Substance: FUROSEMIDE
     Indication: PERIPHERAL SWELLING
  2. FUROSEMIDE TABLETS USP [Suspect]
     Active Substance: FUROSEMIDE
     Indication: JOINT SWELLING
     Dosage: 20 MG, UNK
     Route: 065
  3. LATANOPROST. [Suspect]
     Active Substance: LATANOPROST
     Indication: PRODUCT USED FOR UNKNOWN INDICATION
     Dosage: UNK DF, QD
     Route: 047

REACTIONS (4)
  - Dyspnoea [Not Recovered/Not Resolved]
  - Arthralgia [Unknown]
  - Heart rate increased [Not Recovered/Not Resolved]
  - Eye disorder [Unknown]
